FAERS Safety Report 6695466-0 (Version None)
Quarter: 2010Q2

REPORT INFORMATION
  Report Type: 
  Country: None (occurrence: None)
  Receive Date: 20100422
  Receipt Date: 20100422
  Transmission Date: 20101027
  Serious: Yes (Hospitalization)
  Sender: FDA-Public Use
  Company Number: None

PATIENT
  Age: 75 Year
  Sex: Male
  Weight: 79.8 kg

DRUGS (1)
  1. CLINDAMYCIN [Suspect]
     Indication: SINUSITIS
     Dosage: 300 MG QID PO
     Route: 048
     Dates: start: 20100114, end: 20100210

REACTIONS (7)
  - ABDOMINAL PAIN [None]
  - ASTHENIA [None]
  - DIARRHOEA INFECTIOUS [None]
  - DIZZINESS [None]
  - FATIGUE [None]
  - NAUSEA [None]
  - VOMITING [None]
